FAERS Safety Report 18034932 (Version 1)
Quarter: 2020Q3

REPORT INFORMATION
  Report Type: Spontaneous
  Country: US (occurrence: US)
  Receive Date: 20200716
  Receipt Date: 20200716
  Transmission Date: 20201103
  Serious: Yes (Other)
  Sender: FDA-Public Use
  Company Number: None

PATIENT
  Age: 57 Year
  Sex: Male
  Weight: 204 kg

DRUGS (16)
  1. AZITHROMYCIN 500MG IV DAILY [Concomitant]
     Dates: start: 20200707, end: 20200710
  2. PROPOFOL INFUSION [Concomitant]
     Active Substance: PROPOFOL
     Dates: start: 20200708, end: 20200713
  3. CARBAMAZEPINE 200MG PO Q12H [Concomitant]
     Dates: start: 20200716
  4. ENOXAPARIN 40MG SUBQ Q12H [Concomitant]
     Dates: start: 20200708
  5. FAMOTIDINE 20MG IV Q12H [Concomitant]
     Dates: start: 20200708
  6. MEROPENEM 1G IV Q6H [Concomitant]
     Dates: start: 20200713, end: 20200714
  7. TOCILIZUMAB 400MG X 1 [Concomitant]
     Dates: start: 20200709, end: 20200709
  8. VITAMIN C 1000MG DAILY [Concomitant]
     Dates: start: 20200711
  9. CEFTRIAXONE 1G IV DAILY [Concomitant]
     Dates: start: 20200707, end: 20200710
  10. FENTANYL INFUSION [Concomitant]
     Active Substance: FENTANYL
     Dates: start: 20200711
  11. REMDESIVIR. [Suspect]
     Active Substance: REMDESIVIR
     Indication: COVID-19 PNEUMONIA
     Dosage: ?          OTHER FREQUENCY:200MG, 100MG/DX4D;?
     Route: 042
     Dates: start: 20200708, end: 20200711
  12. VANCOMYCIN VARYING DOSES [Concomitant]
     Dates: start: 20200714
  13. DEXAMETHASONE 6MG IV DAILY [Concomitant]
     Dates: start: 20200708
  14. MIDAZOLAM INFUSION [Concomitant]
     Active Substance: MIDAZOLAM HYDROCHLORIDE
     Dates: start: 20200711
  15. RISPERIDONE 0.5MG PO QHS [Concomitant]
     Dates: start: 20200716
  16. ZINC SULFATE 220MG PO DAILY [Concomitant]
     Dates: start: 20200711

REACTIONS (7)
  - Inflammatory marker increased [None]
  - Pneumonia staphylococcal [None]
  - Blood creatinine increased [None]
  - Alanine aminotransferase increased [None]
  - Aspartate aminotransferase increased [None]
  - Therapy cessation [None]
  - Blood bilirubin increased [None]

NARRATIVE: CASE EVENT DATE: 20200712
